FAERS Safety Report 10729833 (Version 1)
Quarter: 2015Q1

REPORT INFORMATION
  Report Type: Spontaneous
  Country: US (occurrence: None)
  Receive Date: 20150121
  Receipt Date: 20150121
  Transmission Date: 20150721
  Serious: Yes (Other)
  Sender: FDA-Public Use
  Company Number: None

PATIENT
  Age: 36 Year
  Sex: Female
  Weight: 114.76 kg

DRUGS (1)
  1. CONTRAVE [Suspect]
     Active Substance: BUPROPION HYDROCHLORIDE\NALTREXONE HYDROCHLORIDE
     Indication: WEIGHT DECREASED
     Dosage: 1 ILL, ONCE DAILY, TAKEN BY MOUTH
     Route: 048
     Dates: start: 20150119, end: 20150119

REACTIONS (2)
  - Vomiting [None]
  - Seizure [None]

NARRATIVE: CASE EVENT DATE: 20150119
